FAERS Safety Report 5633820-6 (Version None)
Quarter: 2008Q1

REPORT INFORMATION
  Report Type: 
  Country: None (occurrence: None)
  Receive Date: 20080219
  Receipt Date: 20080204
  Transmission Date: 20080703
  Serious: Yes (Hospitalization)
  Sender: FDA-Public Use
  Company Number: 340010M07FRA

PATIENT
  Age: 26 Year
  Sex: Female

DRUGS (1)
  1. OVITRELLE (CHORIOGONADOTROPIN ALFA) [Suspect]
     Indication: ARTIFICIAL INSEMINATION BY PARTNER
     Dosage: 250 MCG, ONCE, SUBCUTANEOUS
     Route: 058
     Dates: start: 20071028, end: 20071028

REACTIONS (3)
  - ABDOMINAL PAIN [None]
  - EFFUSION [None]
  - PREGNANCY TEST POSITIVE [None]
